FAERS Safety Report 21699793 (Version 4)
Quarter: 2024Q4

REPORT INFORMATION
  Report Type: Report from Study
  Country: US (occurrence: US)
  Receive Date: 20221208
  Receipt Date: 20241104
  Transmission Date: 20250114
  Serious: Yes (Hospitalization, Other)
  Sender: ABBVIE
  Company Number: US-ABBVIE-4227877

PATIENT
  Age: 73 Year
  Sex: Female

DRUGS (3)
  1. HUMIRA [Suspect]
     Active Substance: ADALIMUMAB
     Indication: Crohn^s disease
     Dosage: FORM STRENGTH: 40 MG/CITRATE FREE?LAST ADMIN DATE:2015
     Route: 058
     Dates: start: 20150401
  2. HUMIRA [Suspect]
     Active Substance: ADALIMUMAB
     Indication: Psoriasis
     Dosage: FORM STRENGTH: 40 MG/CITRATE FREE
     Route: 058
     Dates: start: 20151012, end: 202310
  3. HUMIRA [Suspect]
     Active Substance: ADALIMUMAB
     Dosage: CITRATE FREE
     Route: 058
     Dates: start: 202401

REACTIONS (12)
  - Lung neoplasm malignant [Recovering/Resolving]
  - Intestinal ulcer [Unknown]
  - Mouth ulceration [Not Recovered/Not Resolved]
  - Dyspnoea [Not Recovered/Not Resolved]
  - Pulmonary mass [Unknown]
  - Haemoglobin decreased [Unknown]
  - Crohn^s disease [Recovering/Resolving]
  - Lymphadenitis [Unknown]
  - Unevaluable event [Unknown]
  - Neuroendocrine carcinoma [Unknown]
  - General physical health deterioration [Unknown]
  - Toothache [Not Recovered/Not Resolved]
